FAERS Safety Report 5981354-1 (Version None)
Quarter: 2008Q4

REPORT INFORMATION
  Report Type: 
  Country: None (occurrence: None)
  Receive Date: 20081205
  Receipt Date: 20081201
  Transmission Date: 20090506
  Serious: Yes (Death)
  Sender: FDA-Public Use
  Company Number: US-MERCK-0810USA02104

PATIENT
  Age: 26 Year
  Sex: Male

DRUGS (4)
  1. ISENTRESS [Suspect]
     Indication: HIV INFECTION
     Route: 048
  2. COMBIVIR [Concomitant]
     Route: 065
  3. VALTREX [Concomitant]
     Route: 065
  4. NEBUPENT [Concomitant]
     Route: 065

REACTIONS (2)
  - ACQUIRED IMMUNODEFICIENCY SYNDROME [None]
  - MYCOBACTERIUM AVIUM COMPLEX INFECTION [None]
